FAERS Safety Report 7782892-1 (Version None)
Quarter: 2011Q3

REPORT INFORMATION
  Report Type: 
  Country: None (occurrence: None)
  Receive Date: 20110928
  Receipt Date: 20110920
  Transmission Date: 20111222
  Serious: Yes (Hospitalization, Other)
  Sender: FDA-Public Use
  Company Number: JP-ASTELLAS-2011US006043

PATIENT
  Sex: Female

DRUGS (13)
  1. ANCOTIL [Concomitant]
     Indication: ENCEPHALITIS
     Dosage: 1500 MG, UID/QD
     Route: 048
     Dates: start: 20110809, end: 20110906
  2. GLUCONSAN K [Concomitant]
     Indication: HYPOKALAEMIA
     Dosage: 24 MEQ, UID/QD
     Route: 048
     Dates: start: 20110902
  3. LIVACT [Concomitant]
     Indication: HEPATIC CIRRHOSIS
     Dosage: 12.45 G, UID/QD
     Route: 048
     Dates: start: 20100101
  4. LANSOPRAZOLE [Concomitant]
     Indication: GASTRIC ULCER
     Dosage: 15 MG, UID/QD
     Route: 048
     Dates: start: 20110101
  5. URSO 250 [Concomitant]
     Indication: LIVER DISORDER
     Dosage: 450 MG, UID/QD
     Route: 048
     Dates: start: 20110801
  6. AMBISOME [Suspect]
     Indication: MENINGITIS CRYPTOCOCCAL
     Dosage: 150 MG, UID/QD
     Route: 042
     Dates: start: 20110808, end: 20110829
  7. PREDNISOLONE [Concomitant]
     Indication: AUTOIMMUNE HEPATITIS
     Dosage: 5 MG, UID/QD
     Route: 048
     Dates: start: 20100101
  8. AMBISOME [Suspect]
     Indication: ENCEPHALITIS
     Dosage: 200 MG, UID/QD
     Route: 042
     Dates: start: 20110830, end: 20110905
  9. AMBISOME [Suspect]
     Dosage: 150 MG, UID/QD
     Route: 042
     Dates: start: 20110906, end: 20110906
  10. VITAMEDIN [Concomitant]
     Indication: HYPOVITAMINOSIS
     Dosage: 75 MG, UID/QD
     Route: 048
     Dates: start: 20110601
  11. BIOFERMIN [Concomitant]
     Indication: DIARRHOEA
     Dosage: 3 DF, UID/QD
     Route: 048
     Dates: start: 20110902
  12. URSO 250 [Concomitant]
     Dosage: UNK
  13. ANCOTIL [Concomitant]
     Indication: MENINGITIS CRYPTOCOCCAL
     Dosage: 2000 MG, UID/QD
     Route: 048
     Dates: start: 20110809, end: 20110906

REACTIONS (4)
  - RENAL TUBULAR DISORDER [None]
  - DIARRHOEA [None]
  - COLITIS [None]
  - BLOOD CREATININE INCREASED [None]
